FAERS Safety Report 9688548 (Version 2)
Quarter: 2013Q4

REPORT INFORMATION
  Report Type: Spontaneous
  Country: GB (occurrence: GB)
  Receive Date: 20131114
  Receipt Date: 20131114
  Transmission Date: 20140711
  Serious: Yes (Hospitalization)
  Sender: FDA-Public Use
  Company Number: GB-TEVA-425679ISR

PATIENT
  Age: 88 Year
  Sex: Male

DRUGS (2)
  1. AMITRIPTYLINE [Suspect]
     Indication: ARTHRALGIA
     Route: 048
     Dates: start: 20121130, end: 20121204
  2. VISCOTEARS [Concomitant]

REACTIONS (9)
  - Dizziness [Recovered/Resolved]
  - Tremor [Unknown]
  - Constipation [Unknown]
  - Paraesthesia [Unknown]
  - Urinary hesitation [Unknown]
  - Syncope [Recovered/Resolved]
  - Loss of consciousness [Recovered/Resolved]
  - Fall [Recovered/Resolved]
  - Orthostatic hypotension [Recovered/Resolved]
